FAERS Safety Report 16182192 (Version 1)
Quarter: 2019Q2

REPORT INFORMATION
  Report Type: Spontaneous
  Country: CH (occurrence: CH)
  Receive Date: 20190411
  Receipt Date: 20190411
  Transmission Date: 20190711
  Serious: Yes (Other)
  Sender: FDA-Public Use
  Company Number: CH-ROCHE-2299700

PATIENT
  Age: 40 Year

DRUGS (2)
  1. MABTHERA [Suspect]
     Active Substance: RITUXIMAB
     Route: 042
     Dates: start: 20170505
  2. MABTHERA [Suspect]
     Active Substance: RITUXIMAB
     Indication: GLOMERULONEPHRITIS
     Route: 042
     Dates: start: 20140814

REACTIONS (3)
  - Intentional product use issue [Unknown]
  - Off label use [Unknown]
  - Glomerulonephritis [Unknown]
